FAERS Safety Report 7730612-9 (Version None)
Quarter: 2011Q3

REPORT INFORMATION
  Report Type: 
  Country: None (occurrence: None)
  Receive Date: 20110906
  Receipt Date: 20110826
  Transmission Date: 20111222
  Serious: Yes (Hospitalization, Other)
  Sender: FDA-Public Use
  Company Number: US-ASTRAZENECA-2011SE49297

PATIENT
  Age: 55 Year
  Sex: Female
  Weight: 74.8 kg

DRUGS (15)
  1. PRILOSEC OTC [Concomitant]
     Indication: GASTRIC DISORDER
     Dosage: DAILY
  2. SYNTHROID [Concomitant]
     Dates: start: 20110805
  3. PAXIL [Concomitant]
     Indication: ANTIDEPRESSANT THERAPY
     Dates: start: 20110630
  4. SEROQUEL [Suspect]
     Dosage: 1 (100 MG) TO 2 TABLETS DAILY AT BEDTIME
     Route: 048
     Dates: start: 20110404
  5. KLONOPIN [Concomitant]
     Indication: DEPRESSION
     Dosage: 1 TABLET (0.5 MG) AS NEEDED NO MORE THAN 1 DAILY
     Dates: start: 20110630
  6. ULTRAM [Concomitant]
     Indication: BACK PAIN
     Dates: start: 20110725
  7. PHENTERMINE [Concomitant]
     Indication: WEIGHT LOSS DIET
     Dates: start: 20110725
  8. SYNTHROID [Concomitant]
     Indication: THYROID DISORDER
  9. HYDROCODONE [Concomitant]
     Indication: INTERVERTEBRAL DISC DISORDER
     Dosage: 10/500, 2 QID, PRN
  10. SEROQUEL [Suspect]
     Indication: ANXIETY
     Dosage: 1/2 TO 1 TABLET (100 MG) EVERY 8 HOURS AS NEEDED
     Route: 048
     Dates: start: 20110404
  11. SEROQUEL [Suspect]
     Dosage: 1 (100 MG) TO 2 TABLETS DAILY AT BEDTIME
     Route: 048
     Dates: start: 20110404
  12. LOPRESSOR [Concomitant]
     Indication: HYPERTENSION
     Dates: start: 20110702
  13. SEROQUEL [Suspect]
     Indication: DEPRESSION
     Dosage: 1/2 TO 1 TABLET (100 MG) EVERY 8 HOURS AS NEEDED
     Route: 048
     Dates: start: 20110404
  14. KLONOPIN [Concomitant]
     Indication: ANXIETY
     Dosage: 1 TABLET (0.5 MG) AS NEEDED NO MORE THAN 1 DAILY
     Dates: start: 20110630
  15. PRAVASTATIN [Concomitant]
     Indication: HYPERCHOLESTEROLAEMIA
     Dates: start: 20110208

REACTIONS (5)
  - STAPHYLOCOCCAL INFECTION [None]
  - THYROID DISORDER [None]
  - BACK PAIN [None]
  - BLOOD PRESSURE ABNORMAL [None]
  - BLOOD CHOLESTEROL ABNORMAL [None]
